FAERS Safety Report 21347748 (Version 1)
Quarter: 2022Q3

REPORT INFORMATION
  Report Type: Spontaneous
  Country: US (occurrence: None)
  Receive Date: 20220919
  Receipt Date: 20220919
  Transmission Date: 20221027
  Serious: No
  Sender: FDA-Public Use
  Company Number: 2022A297448

PATIENT
  Age: 70 Year
  Sex: Male

DRUGS (5)
  1. BRILINTA [Suspect]
     Active Substance: TICAGRELOR
     Indication: Stent placement
     Dosage: 1 TABLET TWICE A DAY
     Route: 048
     Dates: start: 201804
  2. BRILINTA [Suspect]
     Active Substance: TICAGRELOR
     Indication: Stent placement
     Dosage: 1 TABLET TWICE A DAY
     Route: 048
     Dates: start: 201804
  3. CARVEDILOL [Suspect]
     Active Substance: CARVEDILOL
     Route: 065
     Dates: start: 201804
  4. ATORVASTATIN CALCIUM [Concomitant]
     Active Substance: ATORVASTATIN CALCIUM
     Route: 065
     Dates: start: 201804
  5. LOSARTAN [Concomitant]
     Active Substance: LOSARTAN
     Route: 065
     Dates: start: 201804

REACTIONS (10)
  - Fall [Unknown]
  - Wound [Unknown]
  - Drug intolerance [Recovered/Resolved]
  - Feeling abnormal [Recovered/Resolved]
  - Heart rate abnormal [Recovered/Resolved]
  - Cardiac disorder [Unknown]
  - Cognitive disorder [Recovered/Resolved]
  - Contusion [Recovering/Resolving]
  - Haemorrhage [Unknown]
  - Product use issue [Unknown]

NARRATIVE: CASE EVENT DATE: 20220101
